FAERS Safety Report 12303246 (Version 2)
Quarter: 2016Q2

REPORT INFORMATION
  Report Type: Spontaneous
  Country: US (occurrence: US)
  Receive Date: 20160426
  Receipt Date: 20160609
  Transmission Date: 20160815
  Serious: No
  Sender: FDA-Public Use
  Company Number: US-JNJFOC-20160405138

PATIENT
  Sex: Male

DRUGS (2)
  1. RISPERDAL [Suspect]
     Active Substance: RISPERIDONE
     Indication: DEPRESSION
     Route: 048
     Dates: start: 2006, end: 20080609
  2. RISPERDAL [Suspect]
     Active Substance: RISPERIDONE
     Indication: INJURY
     Route: 048
     Dates: start: 2006, end: 20080609

REACTIONS (5)
  - Weight increased [Unknown]
  - Galactorrhoea [Unknown]
  - Product use issue [Unknown]
  - Gynaecomastia [Unknown]
  - Off label use [Unknown]

NARRATIVE: CASE EVENT DATE: 2006
